FAERS Safety Report 5805859-9 (Version None)
Quarter: 2008Q3

REPORT INFORMATION
  Report Type: 
  Country: None (occurrence: None)
  Receive Date: 20080708
  Receipt Date: 20080625
  Transmission Date: 20090109
  Serious: Yes (Other)
  Sender: FDA-Public Use
  Company Number: 2008SP004544

PATIENT
  Age: 58 Year
  Sex: Female

DRUGS (1)
  1. DR. SCHOLL'S CLEAR WAY LIQUID WART REMOVER (17 PCT) [Suspect]
     Indication: SKIN PAPILLOMA
     Dosage: TOP
     Route: 061

REACTIONS (4)
  - FIBROUS HISTIOCYTOMA [None]
  - NO THERAPEUTIC RESPONSE [None]
  - SKIN DISCOMFORT [None]
  - SKIN PAPILLOMA [None]
